FAERS Safety Report 9030920 (Version 2)
Quarter: 2013Q2

REPORT INFORMATION
  Report Type: Report from Study
  Country: FR (occurrence: FR)
  Receive Date: 20130123
  Receipt Date: 20130424
  Transmission Date: 20140414
  Serious: Yes (Hospitalization, Other)
  Sender: FDA-Public Use
  Company Number: FR-BAXTER-2013BAX002705

PATIENT
  Age: 9 Year
  Sex: Male
  Weight: 19.2 kg

DRUGS (35)
  1. HOLOXAN 2000 MG, POUDRE POUR USAGE PARENT?RAL [Suspect]
     Indication: RHABDOMYOSARCOMA
     Route: 042
     Dates: start: 20101103
  2. HOLOXAN 2000 MG, POUDRE POUR USAGE PARENT?RAL [Suspect]
     Route: 042
     Dates: start: 20101215, end: 20101216
  3. ENDOXAN 200 MG, POUDRE POUR SOLUTION INJECTABLE [Suspect]
     Indication: RHABDOMYOSARCOMA
     Route: 042
     Dates: start: 20110105
  4. ENDOXAN 200 MG, POUDRE POUR SOLUTION INJECTABLE [Suspect]
     Route: 042
     Dates: start: 20110106
  5. NAVELBINE [Suspect]
     Indication: RHABDOMYOSARCOMA
     Dosage: 25 MG/M2
     Route: 042
     Dates: start: 20110610
  6. NAVELBINE [Suspect]
     Route: 042
     Dates: start: 20120410
  7. BEVACIZUMAB [Suspect]
     Indication: RHABDOMYOSARCOMA
     Route: 042
     Dates: start: 20101215
  8. BEVACIZUMAB [Suspect]
     Route: 042
     Dates: start: 20110105
  9. BEVACIZUMAB [Suspect]
     Route: 042
     Dates: start: 20120410
  10. VINCRISTINE [Suspect]
     Indication: RHABDOMYOSARCOMA
     Route: 042
     Dates: start: 20101103
  11. VINCRISTINE [Suspect]
     Route: 042
     Dates: start: 20101215
  12. VINCRISTINE [Suspect]
     Route: 042
     Dates: start: 20110105
  13. DOXORUBICIN [Suspect]
     Indication: RHABDOMYOSARCOMA
     Route: 042
     Dates: start: 20101103
  14. DOXORUBICIN [Suspect]
     Route: 042
     Dates: start: 20101215
  15. DOXORUBICIN [Suspect]
     Route: 042
     Dates: start: 20110106
  16. DACTINOMYCIN [Suspect]
     Indication: RHABDOMYOSARCOMA
     Route: 042
     Dates: start: 20101103
  17. DACTINOMYCIN [Suspect]
     Route: 042
     Dates: start: 20101215
  18. DACTINOMYCIN [Suspect]
     Route: 042
     Dates: start: 20110105
  19. BECOTIDE [Suspect]
     Indication: PRODUCT USED FOR UNKNOWN INDICATION
     Route: 065
     Dates: start: 20120405
  20. BECOTIDE [Suspect]
     Route: 065
     Dates: start: 20120410, end: 20120427
  21. LAROXYL [Concomitant]
     Indication: PRODUCT USED FOR UNKNOWN INDICATION
     Route: 065
  22. FLIXOTIDE [Concomitant]
     Indication: PRODUCT USED FOR UNKNOWN INDICATION
     Route: 065
     Dates: start: 20101102
  23. ROCEPHINE [Concomitant]
     Indication: PRODUCT USED FOR UNKNOWN INDICATION
     Route: 065
     Dates: start: 20101223, end: 20110103
  24. RIVOTRIL [Concomitant]
     Indication: PRODUCT USED FOR UNKNOWN INDICATION
     Route: 065
     Dates: start: 20101102, end: 20101107
  25. RIVOTRIL [Concomitant]
     Route: 065
     Dates: start: 20120405
  26. DESLORATADINE [Concomitant]
     Indication: PRODUCT USED FOR UNKNOWN INDICATION
     Route: 065
     Dates: start: 20101102
  27. DESLORATADINE [Concomitant]
     Route: 065
     Dates: start: 20120327
  28. LACTULOSE [Concomitant]
     Indication: PRODUCT USED FOR UNKNOWN INDICATION
     Route: 065
     Dates: start: 20101106, end: 20101110
  29. ONDANSETRON HYDROCHLORIDE [Concomitant]
     Indication: PRODUCT USED FOR UNKNOWN INDICATION
     Route: 065
     Dates: start: 20101110, end: 20101110
  30. PLITICAN [Concomitant]
     Indication: PRODUCT USED FOR UNKNOWN INDICATION
     Dosage: 20-92 MG/D
     Route: 065
     Dates: start: 20101103, end: 20101107
  31. PLITICAN [Concomitant]
     Dosage: 20-92 MG/D
     Route: 065
     Dates: start: 20101110, end: 20101110
  32. XANAX [Concomitant]
     Indication: PRODUCT USED FOR UNKNOWN INDICATION
     Route: 065
     Dates: start: 20101106, end: 20101110
  33. BACTRIM [Concomitant]
     Indication: PRODUCT USED FOR UNKNOWN INDICATION
     Route: 065
     Dates: start: 20101103
  34. BACTRIM [Concomitant]
     Route: 065
     Dates: start: 20110722
  35. NEURONTIN [Concomitant]
     Indication: PRODUCT USED FOR UNKNOWN INDICATION
     Route: 065
     Dates: start: 20101104, end: 20101112

REACTIONS (5)
  - Mucosal inflammation [Recovered/Resolved]
  - Febrile bone marrow aplasia [Recovered/Resolved]
  - Gingival bleeding [Recovered/Resolved]
  - Convulsion [Recovered/Resolved]
  - Epistaxis [Recovered/Resolved]
